FAERS Safety Report 17329221 (Version 1)
Quarter: 2020Q1

REPORT INFORMATION
  Report Type: Spontaneous
  Country: US (occurrence: US)
  Receive Date: 20200127
  Receipt Date: 20200127
  Transmission Date: 20200409
  Serious: No
  Sender: FDA-Public Use
  Company Number: US-SA-2020SA011908

PATIENT
  Age: 56 Year
  Sex: Female

DRUGS (2)
  1. DUPIXENT [Suspect]
     Active Substance: DUPILUMAB
     Indication: ASTHMA
     Dosage: 200 MG, QOW
     Route: 058
     Dates: start: 20191114, end: 20191227
  2. PREDNISONE. [Concomitant]
     Active Substance: PREDNISONE

REACTIONS (9)
  - Influenza like illness [Not Recovered/Not Resolved]
  - Migraine [Unknown]
  - Eye swelling [Not Recovered/Not Resolved]
  - Cough [Unknown]
  - Lacrimation increased [Unknown]
  - Drug ineffective [Unknown]
  - Oral pain [Unknown]
  - Swelling of eyelid [Not Recovered/Not Resolved]
  - Eye pain [Not Recovered/Not Resolved]
